FAERS Safety Report 7713662-8 (Version None)
Quarter: 2011Q3

REPORT INFORMATION
  Report Type: 
  Country: None (occurrence: None)
  Receive Date: 20110826
  Receipt Date: 20110817
  Transmission Date: 20111222
  Serious: Yes (Hospitalization)
  Sender: FDA-Public Use
  Company Number: US-ROCHE-798330

PATIENT
  Sex: Male

DRUGS (1)
  1. PEGASYS [Suspect]
     Indication: HEPATITIS C
     Route: 065

REACTIONS (5)
  - HAEMOGLOBIN DECREASED [None]
  - PRESYNCOPE [None]
  - DIZZINESS [None]
  - NEUTROPENIA [None]
  - ATRIAL FLUTTER [None]
